FAERS Safety Report 5764054-2 (Version None)
Quarter: 2008Q2

REPORT INFORMATION
  Report Type: 
  Country: None (occurrence: None)
  Receive Date: 20080606
  Receipt Date: 20080606
  Transmission Date: 20081010
  Serious: Yes (Death)
  Sender: FDA-Public Use
  Company Number: None

PATIENT
  Sex: Female
  Weight: 36.2878 kg

DRUGS (1)
  1. DIGITEK [Suspect]
     Indication: ATRIAL FIBRILLATION
     Dosage: 1 PER DAY
     Dates: start: 19950101, end: 20080101

REACTIONS (1)
  - DEATH [None]
